FAERS Safety Report 15988921 (Version 1)
Quarter: 2019Q1

REPORT INFORMATION
  Report Type: Spontaneous
  Country: DE (occurrence: DE)
  Receive Date: 20190221
  Receipt Date: 20190221
  Transmission Date: 20190418
  Serious: Yes (Hospitalization)
  Sender: FDA-Public Use
  Company Number: DE-TEVA-2019-DE-1011905

PATIENT
  Age: 66 Year
  Sex: Female

DRUGS (1)
  1. BISOPROLOL-RATIOPHARM 5 MG TABLETTEN [Suspect]
     Active Substance: BISOPROLOL
     Route: 048
     Dates: start: 2018

REACTIONS (2)
  - Rash pruritic [Recovering/Resolving]
  - Hospitalisation [Recovered/Resolved]

NARRATIVE: CASE EVENT DATE: 2018
